FAERS Safety Report 4944752-0 (Version None)
Quarter: 2006Q1

REPORT INFORMATION
  Report Type: 
  Country: None (occurrence: None)
  Receive Date: 20060113
  Receipt Date: 20050311
  Transmission Date: 20060701
  Serious: Yes (Other)
  Sender: FDA-Public Use
  Company Number: HQWYE213517JUL04

PATIENT
  Age: 68 Year
  Sex: Female
  Weight: 52.66 kg

DRUGS (2)
  1. PREMPRO [Suspect]
     Indication: HORMONE REPLACEMENT THERAPY
     Dosage: ORAL
     Route: 048
     Dates: end: 19980101
  2. PREMARIN [Suspect]
     Indication: HOT FLUSH
     Dosage: ORAL
     Route: 048
     Dates: start: 19700101, end: 19800101

REACTIONS (2)
  - BREAST CANCER [None]
  - MYOCARDIAL INFARCTION [None]
